FAERS Safety Report 6390519-9 (Version None)
Quarter: 2009Q4

REPORT INFORMATION
  Report Type: 
  Country: None (occurrence: None)
  Receive Date: 20091006
  Receipt Date: 20090922
  Transmission Date: 20100525
  Serious: Yes (Other)
  Sender: FDA-Public Use
  Company Number: NO-MYLANLABS-2009S1016640

PATIENT
  Age: 31 Year
  Sex: Female

DRUGS (4)
  1. LORAZEPAM [Suspect]
     Indication: MANIA
     Dosage: AT 1830.
     Route: 048
  2. OLANZAPINE [Suspect]
     Indication: MANIA
     Dosage: AT 1900.
     Route: 048
  3. OLANZAPINE [Suspect]
     Dosage: AT 1945 AND 2315.
     Route: 048
  4. ZOPICLONE [Concomitant]
     Indication: MANIA
     Dosage: AT 2400.

REACTIONS (2)
  - HYPOTENSION [None]
  - LOSS OF CONSCIOUSNESS [None]
